FAERS Safety Report 23531802 (Version 1)
Quarter: 2024Q1

REPORT INFORMATION
  Report Type: Spontaneous
  Country: IT (occurrence: IT)
  Receive Date: 20240216
  Receipt Date: 20240216
  Transmission Date: 20240410
  Serious: Yes (Hospitalization)
  Sender: FDA-Public Use
  Company Number: IT-MYLANLABS-2024M1014348

PATIENT
  Age: 70 Year

DRUGS (3)
  1. AMIODARONE [Suspect]
     Active Substance: AMIODARONE
     Indication: Ventricular fibrillation
     Dosage: 300 MILLIGRAM
     Route: 042
  2. LIDOCAINE [Suspect]
     Active Substance: LIDOCAINE
     Indication: Ventricular fibrillation
     Dosage: UNK, INFUSION AT 20 MCG/KG/MIN
     Route: 065
  3. EPINEPHRINE [Concomitant]
     Active Substance: EPINEPHRINE
     Indication: Ventricular fibrillation
     Dosage: UNK, INFUSION AT 0.12 MCG/KG/ MINUTE
     Route: 065

REACTIONS (1)
  - Drug ineffective [Unknown]
